FAERS Safety Report 25386265 (Version 1)
Quarter: 2025Q2

REPORT INFORMATION
  Report Type: Spontaneous
  Country: US (occurrence: None)
  Receive Date: 20250530
  Receipt Date: 20250530
  Transmission Date: 20250717
  Serious: Yes (Other)
  Sender: FDA-CTU
  Company Number: None

PATIENT
  Sex: Female
  Weight: 59.85 kg

DRUGS (1)
  1. ZYRTEC [Suspect]
     Active Substance: CETIRIZINE HYDROCHLORIDE
     Indication: Multiple allergies
     Route: 048

REACTIONS (6)
  - Pruritus [None]
  - Withdrawal syndrome [None]
  - Nausea [None]
  - Headache [None]
  - Quality of life decreased [None]
  - Loss of personal independence in daily activities [None]
